FAERS Safety Report 19579680 (Version 1)
Quarter: 2021Q3

REPORT INFORMATION
  Report Type: Spontaneous
  Country: US (occurrence: US)
  Receive Date: 20210719
  Receipt Date: 20210719
  Transmission Date: 20211014
  Serious: No
  Sender: FDA-Public Use
  Company Number: US-VIFOR (INTERNATIONAL) INC.-VIT-2019-03267

PATIENT
  Age: 58 Year
  Sex: Male

DRUGS (5)
  1. VELTASSA [Suspect]
     Active Substance: PATIROMER
     Indication: HYPERKALAEMIA
     Dosage: 1 PACKET
     Route: 048
     Dates: start: 20180501
  2. FUROSEMIDE. [Concomitant]
     Active Substance: FUROSEMIDE
  3. TRADJENTA [Concomitant]
     Active Substance: LINAGLIPTIN
  4. VITAMINE [Suspect]
     Active Substance: PYRIDOXINE HYDROCHLORIDE
     Indication: PRODUCT USED FOR UNKNOWN INDICATION
  5. CALCIUM+D [Concomitant]
     Active Substance: CALCIUM\VITAMIN D

REACTIONS (2)
  - Product dose omission in error [Unknown]
  - Heart rate increased [Unknown]

NARRATIVE: CASE EVENT DATE: 202012
